FAERS Safety Report 13137177 (Version 1)
Quarter: 2017Q1

REPORT INFORMATION
  Report Type: Spontaneous
  Country: US (occurrence: US)
  Receive Date: 20170120
  Receipt Date: 20170120
  Transmission Date: 20170428
  Serious: No
  Sender: FDA-Public Use
  Company Number: None

PATIENT
  Sex: Female

DRUGS (1)
  1. SUTENT [Suspect]
     Active Substance: SUNITINIB MALATE
     Indication: NEOPLASM MALIGNANT
     Dosage: 25MG 1 CAP DAILY FOR 2 WEEKS OFF FOR 1 ORALLY
     Route: 048
     Dates: start: 20161103, end: 20170107

REACTIONS (2)
  - Hypersomnia [None]
  - Therapy cessation [None]

NARRATIVE: CASE EVENT DATE: 20170107
